FAERS Safety Report 7931119-6 (Version None)
Quarter: 2011Q4

REPORT INFORMATION
  Report Type: 
  Country: None (occurrence: None)
  Receive Date: 20111121
  Receipt Date: 20111111
  Transmission Date: 20120403
  Serious: Yes (Hospitalization)
  Sender: FDA-Public Use
  Company Number: CA-JNJFOC-20111010786

PATIENT
  Sex: Male
  Weight: 69 kg

DRUGS (4)
  1. REMICADE [Suspect]
     Indication: CROHN'S DISEASE
     Route: 042
     Dates: start: 20111008
  2. BENADRYL [Concomitant]
     Indication: PREMEDICATION
     Route: 042
  3. SOLU-CORTEF [Concomitant]
     Indication: PREMEDICATION
     Route: 042
  4. REMICADE [Suspect]
     Route: 042
     Dates: start: 20111022

REACTIONS (8)
  - DYSPNOEA [None]
  - CHILLS [None]
  - CHEST PAIN [None]
  - ADVERSE EVENT [None]
  - HYPERVENTILATION [None]
  - INCORRECT DOSE ADMINISTERED [None]
  - FLUSHING [None]
  - INFUSION RELATED REACTION [None]
